FAERS Safety Report 24016298 (Version 2)
Quarter: 2025Q1

REPORT INFORMATION
  Report Type: Spontaneous
  Country: US (occurrence: US)
  Receive Date: 20240626
  Receipt Date: 20250101
  Transmission Date: 20250409
  Serious: No
  Sender: SANOFI AVENTIS
  Company Number: US-SA-SAC20240619000418

PATIENT
  Age: 14 Year
  Sex: Female

DRUGS (1)
  1. DUPIXENT [Suspect]
     Active Substance: DUPILUMAB
     Indication: Dermatitis atopic
     Dosage: 200MG, QOW
     Route: 058
     Dates: start: 20240529

REACTIONS (4)
  - Rash macular [Not Recovered/Not Resolved]
  - Dermatitis atopic [Unknown]
  - Dry skin [Unknown]
  - Skin discolouration [Unknown]

NARRATIVE: CASE EVENT DATE: 20240101
